FAERS Safety Report 7784532-4 (Version None)
Quarter: 2011Q3

REPORT INFORMATION
  Report Type: 
  Country: None (occurrence: None)
  Receive Date: 20110906
  Receipt Date: 20110919
  Transmission Date: 20111222
  Serious: Yes (Other)
  Sender: FDA-Public Use
  Company Number: NSR_00268_2011

PATIENT
  Age: 2 Month
  Sex: Female

DRUGS (1)
  1. PROPRANOLOL [Suspect]
     Indication: HAEMANGIOMA
     Dosage: (1.8 MG/KG QD, [LESS THAN 2MG/KG PER DAY[)

REACTIONS (3)
  - CAPILLARY NAIL REFILL TEST ABNORMAL [None]
  - PERIPHERAL COLDNESS [None]
  - HYPOTENSION [None]
